FAERS Safety Report 8154997-7 (Version None)
Quarter: 2012Q1

REPORT INFORMATION
  Report Type: 
  Country: None (occurrence: None)
  Receive Date: 20120221
  Receipt Date: 20120210
  Transmission Date: 20120608
  Serious: Yes (Other)
  Sender: FDA-Public Use
  Company Number: JP-GE HEALTHCARE MEDICAL DIAGNOSTICS-OSCN-NO-0810L-0592

PATIENT
  Sex: Male

DRUGS (9)
  1. OMNISCAN [Suspect]
     Indication: PERIPHERAL ISCHAEMIA
     Route: 042
     Dates: start: 20011211, end: 20011211
  2. CEFTAZIDIME (MODACIN) [Concomitant]
     Dates: start: 20011215, end: 20011221
  3. OMNISCAN [Suspect]
     Route: 042
     Dates: start: 20030430, end: 20030430
  4. CALCIUM CARBONATE (CALTAN) [Concomitant]
  5. AMPICILLIN SODIUM W/SULBACTAM SODIUM (UNASYN S) [Concomitant]
     Dates: start: 20011213, end: 20011214
  6. MAGNEVIST [Concomitant]
     Dates: start: 20030225, end: 20030225
  7. CEFOTIAM HYDROCHLORIDE (PANSPORIN) [Concomitant]
     Dates: start: 20030502, end: 20030509
  8. OMNISCAN [Suspect]
     Indication: DIAGNOSTIC PROCEDURE
     Route: 042
     Dates: start: 20011218, end: 20011218
  9. CEFDINIR (CEFZON) [Concomitant]
     Dates: start: 20011207, end: 20011213

REACTIONS (4)
  - HAEMODIALYSIS [None]
  - RENAL IMPAIRMENT [None]
  - NEPHROGENIC SYSTEMIC FIBROSIS [None]
  - VENOUS PRESSURE INCREASED [None]
